FAERS Safety Report 7714954-9 (Version None)
Quarter: 2011Q3

REPORT INFORMATION
  Report Type: 
  Country: None (occurrence: None)
  Receive Date: 20110822
  Receipt Date: 20110809
  Transmission Date: 20111222
  Serious: Yes (Other)
  Sender: FDA-Public Use
  Company Number: AUR-APL-2011-04528

PATIENT
  Age: 78 Year
  Sex: Female
  Weight: 65.7716 kg

DRUGS (3)
  1. VITAMINS (KAPSOVIT) [Concomitant]
  2. SYNTHROID [Concomitant]
  3. SIMVASTATIN [Suspect]
     Indication: BLOOD CHOLESTEROL INCREASED
     Dosage: (1 DOSAGE FORMS,1 D),ORAL
     Route: 048
     Dates: start: 20110420

REACTIONS (2)
  - PRODUCT SUBSTITUTION ISSUE [None]
  - PAIN IN EXTREMITY [None]
